FAERS Safety Report 13587111 (Version 2)
Quarter: 2018Q1

REPORT INFORMATION
  Report Type: Spontaneous
  Country: US (occurrence: US)
  Receive Date: 20170526
  Receipt Date: 20180117
  Transmission Date: 20180508
  Serious: Yes (Other)
  Sender: FDA-Public Use
  Company Number: US-SA-2016SA233692

PATIENT
  Age: 56 Year
  Sex: Female
  Weight: 73 kg

DRUGS (13)
  1. ADRIAMYCIN [Concomitant]
     Active Substance: DOXORUBICIN HYDROCHLORIDE
  2. CYTOXAN [Concomitant]
     Active Substance: CYCLOPHOSPHAMIDE
  3. WARFARIN SODIUM. [Concomitant]
     Active Substance: WARFARIN SODIUM
  4. TAXOTERE [Suspect]
     Active Substance: DOCETAXEL
     Indication: BREAST CANCER FEMALE
     Route: 051
     Dates: start: 20140904, end: 20140904
  5. ATIVAN [Concomitant]
     Active Substance: LORAZEPAM
  6. ACYCLOVIR. [Concomitant]
     Active Substance: ACYCLOVIR
     Route: 065
     Dates: start: 2000
  7. CIPRO [Concomitant]
     Active Substance: CIPROFLOXACIN HYDROCHLORIDE
  8. TAXOTERE [Suspect]
     Active Substance: DOCETAXEL
     Indication: BREAST CANCER FEMALE
     Route: 051
     Dates: start: 20141106, end: 20141106
  9. DEXAMETHASONE. [Concomitant]
     Active Substance: DEXAMETHASONE
  10. VITAMIN D3 [Concomitant]
     Active Substance: CHOLECALCIFEROL
  11. ONDANSETRON [Concomitant]
     Active Substance: ONDANSETRON
  12. PERJETA [Concomitant]
     Active Substance: PERTUZUMAB
  13. PROCHLORPERAZINE MALEATE. [Concomitant]
     Active Substance: PROCHLORPERAZINE MALEATE

REACTIONS (9)
  - Impaired quality of life [Unknown]
  - Injury [Unknown]
  - Anxiety [Unknown]
  - Psychological trauma [Unknown]
  - Hair texture abnormal [Unknown]
  - Discomfort [Unknown]
  - Alopecia [Not Recovered/Not Resolved]
  - Hair colour changes [Unknown]
  - Emotional distress [Unknown]

NARRATIVE: CASE EVENT DATE: 201506
